FAERS Safety Report 7088854-4 (Version None)
Quarter: 2010Q4

REPORT INFORMATION
  Report Type: 
  Country: None (occurrence: None)
  Receive Date: 20101028
  Receipt Date: 20101012
  Transmission Date: 20110411
  Serious: Yes (Hospitalization, Other)
  Sender: FDA-Public Use
  Company Number: ACO_02708_2010

PATIENT
  Age: 73 Year
  Sex: Female
  Weight: 44.4525 kg

DRUGS (8)
  1. ZANAFLEX [Suspect]
     Indication: MUSCLE CONTRACTURE
     Dosage: (ONE IN THE AFTERNOON AND 2 AT NIGHT ORAL)
     Route: 048
     Dates: start: 19960101, end: 20100101
  2. CELECOXIB [Suspect]
     Indication: ARTHRITIS
     Dosage: (DF)
     Dates: start: 20090311, end: 20090320
  3. LISINOPRIL [Concomitant]
  4. MULTI-VITAMINS [Concomitant]
  5. UBIDECARENONE [Concomitant]
  6. BACLOFEN [Concomitant]
  7. CALCIUM WITH VITAMIN D /01233101/ [Concomitant]
  8. ASPIRIN [Concomitant]

REACTIONS (14)
  - AMNESIA [None]
  - BRAIN CONTUSION [None]
  - CEREBELLAR ATROPHY [None]
  - DRUG HYPERSENSITIVITY [None]
  - ENCEPHALOMALACIA [None]
  - FACIAL BONES FRACTURE [None]
  - FALL [None]
  - FATIGUE [None]
  - HYPOTENSION [None]
  - INAPPROPRIATE SCHEDULE OF DRUG ADMINISTRATION [None]
  - LOSS OF CONSCIOUSNESS [None]
  - SINUS BRADYCARDIA [None]
  - SUBDURAL HAEMATOMA [None]
  - SYNCOPE [None]
